FAERS Safety Report 4653566-0 (Version None)
Quarter: 2005Q2

REPORT INFORMATION
  Report Type: 
  Country: None (occurrence: None)
  Receive Date: 20050404
  Receipt Date: 20050121
  Transmission Date: 20051028
  Serious: No
  Sender: FDA-Public Use
  Company Number: USA050188402

PATIENT
  Sex: Female

DRUGS (3)
  1. CYMBALTA [Suspect]
     Indication: BIPOLAR DISORDER
     Dosage: 60 MG DAY
  2. TRILEPTAL [Concomitant]
  3. SEROQUEL [Concomitant]

REACTIONS (3)
  - DEPRESSION [None]
  - MANIA [None]
  - MOOD SWINGS [None]
